FAERS Safety Report 7183156-X (Version None)
Quarter: 2010Q4

REPORT INFORMATION
  Report Type: 
  Country: None (occurrence: None)
  Receive Date: 20101222
  Receipt Date: 20100419
  Transmission Date: 20110411
  Serious: No
  Sender: FDA-Public Use
  Company Number: US-PFIZER INC-2010049948

PATIENT
  Sex: Female

DRUGS (1)
  1. TRIAZOLAM [Suspect]

REACTIONS (2)
  - FEELING ABNORMAL [None]
  - MALAISE [None]
